FAERS Safety Report 13150011 (Version 1)
Quarter: 2017Q1

REPORT INFORMATION
  Report Type: Report from Study
  Country: US (occurrence: US)
  Receive Date: 20170124
  Receipt Date: 20170124
  Transmission Date: 20170428
  Serious: No
  Sender: FDA-Public Use
  Company Number: US-AMGEN-USASL2016169324

PATIENT
  Age: 68 Year
  Sex: Female
  Weight: 71.66 kg

DRUGS (2)
  1. REPATHA [Suspect]
     Active Substance: EVOLOCUMAB
     Indication: BLOOD CHOLESTEROL INCREASED
     Dosage: 140 UNK, Q2WK
     Route: 058
     Dates: end: 20160903
  2. REPATHA [Suspect]
     Active Substance: EVOLOCUMAB
     Indication: HYPERLIPIDAEMIA

REACTIONS (8)
  - Faeces discoloured [Unknown]
  - Gastrointestinal disorder [Unknown]
  - Joint range of motion decreased [Unknown]
  - Oedema [Unknown]
  - Skin disorder [Unknown]
  - Chest discomfort [Unknown]
  - Eczema [Unknown]
  - Diarrhoea [Recovered/Resolved]

NARRATIVE: CASE EVENT DATE: 20160309
